FAERS Safety Report 8967893 (Version 1)
Quarter: 2012Q4

REPORT INFORMATION
  Report Type: 
  Country: US (occurrence: US)
  Receive Date: 20121218
  Receipt Date: 20121218
  Transmission Date: 20130627
  Serious: No
  Sender: FDA-Public Use
  Company Number: US-GLAXOSMITHKLINE-A0963512A

PATIENT
  Age: 58 Year
  Sex: Female

DRUGS (6)
  1. COREG CR [Suspect]
     Indication: HYPERTENSION
     Dosage: 20MG Per day
     Route: 048
  2. PLAVIX [Concomitant]
  3. SIMVASTATIN [Concomitant]
  4. PREMARIN [Concomitant]
  5. CELEXA [Concomitant]
  6. XANAX [Concomitant]

REACTIONS (2)
  - Palpitations [Unknown]
  - Heart rate increased [Unknown]
